FAERS Safety Report 4673277-5 (Version None)
Quarter: 2005Q2

REPORT INFORMATION
  Report Type: 
  Country: None (occurrence: None)
  Receive Date: 20050523
  Receipt Date: 20050523
  Transmission Date: 20051028
  Serious: Yes (Life-Threatening, Hospitalization)
  Sender: FDA-Public Use
  Company Number: None

PATIENT
  Age: 84 Year
  Sex: Male
  Weight: 82.6 kg

DRUGS (7)
  1. CARVEDILOL [Suspect]
  2. SPIRONOLACTONE 25MG TAB [Suspect]
  3. FUROSEMIDE [Suspect]
  4. LISINOPRIL [Suspect]
  5. METOPROLOL 50MG TAB [Suspect]
  6. NIFEDIPINE [Suspect]
  7. NITROGLYCERIN [Suspect]

REACTIONS (1)
  - HYPOTENSION [None]
